FAERS Safety Report 13469260 (Version 1)
Quarter: 2017Q2

REPORT INFORMATION
  Report Type: Report from Study
  Country: CA (occurrence: CA)
  Receive Date: 20170421
  Receipt Date: 20170421
  Transmission Date: 20170830
  Serious: Yes (Hospitalization, Other)
  Sender: FDA-Public Use
  Company Number: PHHY2017CA057452

PATIENT
  Sex: Male

DRUGS (1)
  1. AFINITOR DISPERZ [Suspect]
     Active Substance: EVEROLIMUS
     Indication: ASTROCYTOMA, LOW GRADE
     Dosage: 6 MG, QD
     Route: 048
     Dates: start: 201607

REACTIONS (9)
  - Febrile convulsion [Unknown]
  - Cough [Unknown]
  - Apnoeic attack [Unknown]
  - Pneumonia [Unknown]
  - Measles [Unknown]
  - Pyrexia [Unknown]
  - Ear disorder [Unknown]
  - Stomatitis [Unknown]
  - Viral upper respiratory tract infection [Unknown]
